FAERS Safety Report 4983120-2 (Version None)
Quarter: 2006Q2

REPORT INFORMATION
  Report Type: 
  Country: None (occurrence: None)
  Receive Date: 20060426
  Receipt Date: 20060421
  Transmission Date: 20061013
  Serious: Yes (Death)
  Sender: FDA-Public Use
  Company Number: ES-JNJFOC-20060405096

PATIENT
  Age: 73 Year
  Sex: Male

DRUGS (2)
  1. HALOPERIDOL [Suspect]
     Indication: DRUG USE FOR UNKNOWN INDICATION
     Route: 048
  2. OMNIC [Interacting]

REACTIONS (2)
  - DEATH [None]
  - DRUG INTERACTION [None]
